FAERS Safety Report 5951499-0 (Version None)
Quarter: 2008Q4

REPORT INFORMATION
  Report Type: 
  Country: None (occurrence: None)
  Receive Date: 20081113
  Receipt Date: 20081103
  Transmission Date: 20090506
  Serious: Yes (Other)
  Sender: FDA-Public Use
  Company Number: US-JNJCH-2008053978

PATIENT
  Age: 6 Year
  Sex: Female

DRUGS (1)
  1. DEXTROMETHORPHAN [Suspect]
     Indication: DRUG USE FOR UNKNOWN INDICATION
     Dosage: TEXT:UNSPECIFIED
     Route: 048

REACTIONS (4)
  - ABDOMINAL PAIN [None]
  - HYPERSENSITIVITY [None]
  - RASH [None]
  - TREMOR [None]
